FAERS Safety Report 7424814-9 (Version None)
Quarter: 2011Q2

REPORT INFORMATION
  Report Type: 
  Country: None (occurrence: None)
  Receive Date: 20110419
  Receipt Date: 20110119
  Transmission Date: 20111010
  Serious: No
  Sender: FDA-Public Use
  Company Number: US-ABBOTT-11P-163-0699998-00

PATIENT
  Sex: Female

DRUGS (1)
  1. LUPRON DEPOT-PED [Suspect]
     Indication: PRODUCT USED FOR UNKNOWN INDICATION
     Dosage: PEDIATRIC DOSE

REACTIONS (1)
  - DRUG DISPENSING ERROR [None]
